FAERS Safety Report 5340649-5 (Version None)
Quarter: 2007Q2

REPORT INFORMATION
  Report Type: 
  Country: None (occurrence: None)
  Receive Date: 20070405
  Receipt Date: 20070206
  Transmission Date: 20071010
  Serious: No
  Sender: FDA-Public Use
  Company Number: US200612002822

PATIENT
  Age: 52 Year
  Sex: Female

DRUGS (6)
  1. CYMBALTA [Suspect]
     Indication: DEPRESSION
     Dosage: SEE IMAGE
     Route: 048
     Dates: start: 20061010, end: 20060101
  2. CYMBALTA [Suspect]
     Indication: DEPRESSION
     Dosage: SEE IMAGE
     Route: 048
     Dates: start: 20060101, end: 20061212
  3. LASIX [Concomitant]
  4. REQUIP [Concomitant]
  5. VERAPAMIL [Concomitant]
  6. PROTONIX [Concomitant]

REACTIONS (4)
  - CLAVICLE FRACTURE [None]
  - DIPLOPIA [None]
  - DIZZINESS [None]
  - ROAD TRAFFIC ACCIDENT [None]
